FAERS Safety Report 9771825 (Version 1)
Quarter: 2013Q4

REPORT INFORMATION
  Report Type: Spontaneous
  Country: BR (occurrence: BR)
  Receive Date: 20131219
  Receipt Date: 20131219
  Transmission Date: 20140711
  Serious: Yes (Hospitalization, Other)
  Sender: FDA-Public Use
  Company Number: BR-ASTRAZENECA-2013SE91410

PATIENT
  Age: 69 Year
  Sex: Female
  Weight: 72 kg

DRUGS (8)
  1. ATACAND HCT [Suspect]
     Indication: HYPERTENSION
     Dosage: 12.5 + 8 MG DAILY
     Route: 048
     Dates: start: 2005
  2. SYNTHROID [Concomitant]
     Indication: HYPOTHYROIDISM
     Route: 048
  3. SIMVASTATIN [Concomitant]
     Indication: BLOOD CHOLESTEROL INCREASED
     Route: 048
  4. LEXOTAN [Concomitant]
     Indication: SEDATION
     Route: 048
  5. LEXOTAN [Concomitant]
     Indication: SLEEP DISORDER
     Route: 048
  6. ESCITALOPRAM [Concomitant]
     Indication: SEDATION
     Route: 048
  7. ESCITALOPRAM [Concomitant]
     Indication: SLEEP DISORDER
     Route: 048
  8. GLIFAGE [Concomitant]

REACTIONS (2)
  - Breast cancer female [Unknown]
  - Glucose tolerance impaired [Unknown]
